FAERS Safety Report 18102584 (Version 2)
Quarter: 2021Q1

REPORT INFORMATION
  Report Type: Spontaneous
  Country: CA (occurrence: CA)
  Receive Date: 20200803
  Receipt Date: 20210326
  Transmission Date: 20210419
  Serious: Yes (Hospitalization)
  Sender: FDA-Public Use
  Company Number: CA-ASTRAZENECA-2020SE94928

PATIENT
  Age: 77 Year
  Sex: Female
  Weight: 56 kg

DRUGS (19)
  1. IMFINZI [Suspect]
     Active Substance: DURVALUMAB
     Indication: LUNG ADENOCARCINOMA
     Dosage: 57.0MG UNKNOWN
     Route: 041
     Dates: start: 20200120, end: 20200120
  2. AMIODARONE [Concomitant]
     Active Substance: AMIODARONE
     Route: 065
  3. BETADERM [Concomitant]
     Active Substance: BETAMETHASONE VALERATE
     Route: 065
  4. PREGABALIN. [Concomitant]
     Active Substance: PREGABALIN
     Route: 065
  5. PROCHLORAZINE [Concomitant]
     Route: 065
  6. CALCIUM D 500 [Concomitant]
     Active Substance: CALCIUM\VITAMIN D
     Route: 065
  7. SEEBRI BREEZHALER [Concomitant]
     Active Substance: GLYCOPYRROLATE
     Route: 065
  8. XYLOCAINE TOPICAL [Concomitant]
     Route: 065
  9. METOPROLOL. [Concomitant]
     Active Substance: METOPROLOL
     Route: 065
  10. NITRO SPRAY [Concomitant]
     Active Substance: NITROGLYCERIN
     Route: 065
  11. CRESTOR [Concomitant]
     Active Substance: ROSUVASTATIN CALCIUM
     Dosage: UNKNOWN
     Route: 065
  12. COVERSYL [Concomitant]
     Active Substance: PERINDOPRIL
     Route: 065
  13. COLACE [Concomitant]
     Active Substance: DOCUSATE SODIUM
     Route: 065
  14. KETAMINE [Concomitant]
     Active Substance: KETAMINE
     Route: 065
  15. IPRAVENT [Concomitant]
     Route: 065
  16. VITAMIN B12 [Concomitant]
     Active Substance: CYANOCOBALAMIN
     Route: 065
  17. ELIQUIS [Concomitant]
     Active Substance: APIXABAN
     Route: 065
  18. PANTOLOC [Concomitant]
     Active Substance: PANTOPRAZOLE SODIUM
     Route: 065
  19. TYLENOL [Concomitant]
     Active Substance: ACETAMINOPHEN
     Route: 065

REACTIONS (10)
  - Confusional state [Recovering/Resolving]
  - Hyperacusis [Recovering/Resolving]
  - Photophobia [Recovering/Resolving]
  - Encephalopathy [Recovering/Resolving]
  - Headache [Recovering/Resolving]
  - Vomiting [Recovering/Resolving]
  - Nausea [Recovering/Resolving]
  - Visual impairment [Recovering/Resolving]
  - Ear pain [Recovering/Resolving]
  - Electrocardiogram abnormal [Recovering/Resolving]
